FAERS Safety Report 4441296-X (Version None)
Quarter: 2004Q3

REPORT INFORMATION
  Report Type: 
  Country: None (occurrence: None)
  Receive Date: 20040728
  Receipt Date: 20040326
  Transmission Date: 20050211
  Serious: No
  Sender: FDA-Public Use
  Company Number: USA040363383

PATIENT
  Age: 36 Year
  Sex: Male

DRUGS (2)
  1. STRATTERA [Suspect]
     Dosage: 40 MG/2 DAY
     Dates: start: 20040201
  2. ADDERALL 10 [Concomitant]

REACTIONS (3)
  - BLOOD BILIRUBIN INCREASED [None]
  - HEADACHE [None]
  - HYPERHIDROSIS [None]
